FAERS Safety Report 9879814 (Version 2)
Quarter: 2014Q1

REPORT INFORMATION
  Report Type: Spontaneous
  Country: US (occurrence: US)
  Receive Date: 20140206
  Receipt Date: 20140206
  Transmission Date: 20141002
  Serious: Yes (Other)
  Sender: FDA-Public Use
  Company Number: US-GE HEALTHCARE MEDICAL DIAGNOSTICS-OSCN-PR-1007S-0202

PATIENT
  Sex: Male
  Weight: 146.19 kg

DRUGS (24)
  1. OMNISCAN [Suspect]
     Indication: SLEEP APNOEA SYNDROME
     Route: 042
     Dates: start: 19991206, end: 19991206
  2. OMNISCAN [Suspect]
     Indication: RENAL MASS
     Route: 042
     Dates: start: 20001016, end: 20001016
  3. OMNISCAN [Suspect]
     Indication: HEADACHE
     Route: 042
     Dates: start: 20010227, end: 20010227
  4. OMNISCAN [Suspect]
     Indication: METASTASIS
     Route: 042
     Dates: start: 20010730, end: 20010730
  5. OMNISCAN [Suspect]
     Indication: RADIOTHERAPY
     Route: 042
     Dates: start: 20010815, end: 20010815
  6. OMNISCAN [Suspect]
     Indication: BRAIN STEM SYNDROME
     Route: 042
     Dates: start: 20011211, end: 20011211
  7. OMNISCAN [Suspect]
     Indication: OSTEOARTHRITIS
  8. OMNISCAN [Suspect]
     Indication: SPINAL CORD COMPRESSION
  9. GADOLINIUM (UNSPECIFIED) [Suspect]
     Indication: CENTRAL NERVOUS SYSTEM LESION
     Route: 042
     Dates: start: 20020815, end: 20020815
  10. GADOLINIUM (UNSPECIFIED) [Suspect]
     Route: 042
     Dates: start: 20021126, end: 20021126
  11. OPTIMARK [Suspect]
     Indication: HEMIPARESIS
     Route: 042
     Dates: start: 20040923, end: 20040923
  12. OPTIMARK [Suspect]
     Indication: NEUROPATHY PERIPHERAL
  13. OPTIMARK [Suspect]
     Indication: PAIN IN EXTREMITY
  14. OPTIMARK [Suspect]
     Indication: MUSCULAR WEAKNESS
  15. MAGNEVIST [Suspect]
     Indication: SYNCOPE
     Route: 042
     Dates: start: 20020205, end: 20020205
  16. MAGNEVIST [Suspect]
     Indication: CEREBELLAR TUMOUR
     Route: 042
     Dates: start: 20020508, end: 20020508
  17. MAGNEVIST [Suspect]
     Indication: BRAIN OEDEMA
  18. MAGNEVIST [Suspect]
     Indication: RENAL CELL CARCINOMA
  19. MAGNEVIST [Suspect]
     Indication: METASTASES TO CENTRAL NERVOUS SYSTEM
  20. AVAPRO [Concomitant]
     Indication: PRODUCT USED FOR UNKNOWN INDICATION
  21. POTASSIUM CHLORIDE [Concomitant]
     Indication: PRODUCT USED FOR UNKNOWN INDICATION
  22. NEXIUM [Concomitant]
     Indication: PRODUCT USED FOR UNKNOWN INDICATION
  23. PHENERGAN [Concomitant]
     Indication: PRODUCT USED FOR UNKNOWN INDICATION
  24. HERBAL MEDICATIONS [Concomitant]
     Indication: PRODUCT USED FOR UNKNOWN INDICATION

REACTIONS (1)
  - Nephrogenic systemic fibrosis [Not Recovered/Not Resolved]
